FAERS Safety Report 11590766 (Version 2)
Quarter: 2015Q4

REPORT INFORMATION
  Report Type: Spontaneous
  Country: US (occurrence: US)
  Receive Date: 20151002
  Receipt Date: 20151023
  Transmission Date: 20160304
  Serious: Yes (Other)
  Sender: FDA-Public Use
  Company Number: US-TEVA-597664USA

PATIENT
  Age: 35 Year
  Sex: Male
  Weight: 104.42 kg

DRUGS (2)
  1. COPAXONE [Suspect]
     Active Substance: GLATIRAMER ACETATE
     Indication: RELAPSING-REMITTING MULTIPLE SCLEROSIS
     Route: 065
     Dates: start: 201506
  2. COPAXONE [Suspect]
     Active Substance: GLATIRAMER ACETATE
     Route: 065
     Dates: end: 201506

REACTIONS (8)
  - Injection site pain [Not Recovered/Not Resolved]
  - Bacterial infection [Recovered/Resolved]
  - Injection site erythema [Not Recovered/Not Resolved]
  - Injection site infection [Recovered/Resolved]
  - Injection site injury [Recovered/Resolved]
  - Injection site bruising [Not Recovered/Not Resolved]
  - Injection site pain [Not Recovered/Not Resolved]
  - Injection site pain [Recovered/Resolved]

NARRATIVE: CASE EVENT DATE: 2013
